FAERS Safety Report 6552056-8 (Version None)
Quarter: 2010Q1

REPORT INFORMATION
  Report Type: 
  Country: None (occurrence: None)
  Receive Date: 20100120
  Receipt Date: 20100120
  Transmission Date: 20100710
  Serious: Yes (Life-Threatening, Hospitalization)
  Sender: FDA-Public Use
  Company Number: 090511-000130

PATIENT
  Sex: Female

DRUGS (1)
  1. VITAPOWER VIATMINS, GUTHY-RENKER LLC [Suspect]
     Indication: VITAMIN SUPPLEMENTATION
     Dosage: ONE DAILY, ORALLY
     Route: 048
     Dates: start: 20090511, end: 20090511

REACTIONS (1)
  - HOSPITALISATION [None]
